FAERS Safety Report 16028780 (Version 6)
Quarter: 2019Q3

REPORT INFORMATION
  Report Type: Spontaneous
  Country: US (occurrence: US)
  Receive Date: 20190304
  Receipt Date: 20190820
  Transmission Date: 20191004
  Serious: Yes (Death, Other)
  Sender: FDA-Public Use
  Company Number: US-ASTRAZENECA-2018SF26302

PATIENT
  Age: 694 Month
  Sex: Male
  Weight: 108.9 kg

DRUGS (27)
  1. CIPROFLOXACIN. [Concomitant]
     Active Substance: CIPROFLOXACIN
  2. PRAVASTATIN. [Concomitant]
     Active Substance: PRAVASTATIN
     Indication: BLOOD CHOLESTEROL
  3. CLINDAMYCIN. [Concomitant]
     Active Substance: CLINDAMYCIN
  4. ZOFRAN [Concomitant]
     Active Substance: ONDANSETRON HYDROCHLORIDE
  5. TRAMADOL. [Concomitant]
     Active Substance: TRAMADOL
     Indication: ANALGESIC THERAPY
  6. ACETAMINOPHEN. [Concomitant]
     Active Substance: ACETAMINOPHEN
     Indication: ANALGESIC THERAPY
  7. VALIUM [Concomitant]
     Active Substance: DIAZEPAM
  8. ASPIRIN. [Concomitant]
     Active Substance: ASPIRIN
     Indication: ANALGESIC THERAPY
  9. NEXIUM [Suspect]
     Active Substance: ESOMEPRAZOLE MAGNESIUM
     Indication: GASTROOESOPHAGEAL REFLUX DISEASE
     Route: 048
     Dates: start: 200103, end: 201501
  10. CARVEDILOL. [Concomitant]
     Active Substance: CARVEDILOL
     Indication: HYPERTENSION
  11. LOSARTAN. [Concomitant]
     Active Substance: LOSARTAN
     Indication: HYPERTENSION
  12. RANITIDINE. [Concomitant]
     Active Substance: RANITIDINE
     Indication: ANALGESIC THERAPY
  13. NOVOLIN [Concomitant]
     Active Substance: INSULIN HUMAN
  14. AMLODIPINE [Concomitant]
     Active Substance: AMLODIPINE BESYLATE
     Indication: HYPERTENSION
  15. HYDROCODONE [Concomitant]
     Active Substance: HYDROCODONE
     Indication: ANALGESIC THERAPY
  16. HYDRALAZINE [Concomitant]
     Active Substance: HYDRALAZINE HYDROCHLORIDE
     Indication: HYPERTENSION
  17. LISINOPRIL. [Concomitant]
     Active Substance: LISINOPRIL
     Indication: HYPERTENSION
  18. ZOLPIDEM TARTRATE. [Concomitant]
     Active Substance: ZOLPIDEM TARTRATE
  19. AMITIZA [Concomitant]
     Active Substance: LUBIPROSTONE
  20. NEXIUM [Suspect]
     Active Substance: ESOMEPRAZOLE MAGNESIUM
     Indication: GASTROOESOPHAGEAL REFLUX DISEASE
     Route: 048
     Dates: start: 20010220, end: 20190104
  21. NEXIUM [Suspect]
     Active Substance: ESOMEPRAZOLE MAGNESIUM
     Indication: GASTROOESOPHAGEAL REFLUX DISEASE
     Route: 048
     Dates: start: 200103, end: 201901
  22. NEXIUM [Suspect]
     Active Substance: ESOMEPRAZOLE MAGNESIUM
     Indication: GASTROOESOPHAGEAL REFLUX DISEASE
     Dosage: GENERIC
     Route: 065
     Dates: start: 201502, end: 201902
  23. ATORVASTATIN [Concomitant]
     Active Substance: ATORVASTATIN
     Indication: BLOOD CHOLESTEROL
  24. IBUPROFEN. [Concomitant]
     Active Substance: IBUPROFEN
     Indication: ANALGESIC THERAPY
  25. SILVER SULFADIAZINE. [Concomitant]
     Active Substance: SILVER SULFADIAZINE
  26. CEFPODOXIME [Concomitant]
     Active Substance: CEFPODOXIME
  27. LANTUS [Concomitant]
     Active Substance: INSULIN GLARGINE

REACTIONS (9)
  - End stage renal disease [Fatal]
  - Renal failure [Unknown]
  - Acute kidney injury [Unknown]
  - Nephrogenic anaemia [Unknown]
  - Lactic acidosis [Fatal]
  - Arteriosclerosis coronary artery [Fatal]
  - Renal injury [Unknown]
  - Hypoperfusion [Fatal]
  - Chronic kidney disease [Unknown]

NARRATIVE: CASE EVENT DATE: 201603
